FAERS Safety Report 25167856 (Version 3)
Quarter: 2025Q3

REPORT INFORMATION
  Report Type: Report from Study
  Country: US (occurrence: US)
  Receive Date: 20250407
  Receipt Date: 20250929
  Transmission Date: 20251021
  Serious: Yes (Other)
  Sender: UCB
  Company Number: US-UCBSA-2025019583

PATIENT
  Sex: Male
  Weight: 40.3 kg

DRUGS (4)
  1. FINTEPLA [Suspect]
     Active Substance: FENFLURAMINE
     Indication: Lennox-Gastaut syndrome
     Dates: start: 20240918
  2. FINTEPLA [Suspect]
     Active Substance: FENFLURAMINE
     Dosage: 4.6 MILLIGRAM, 2X/DAY (BID)
     Dates: start: 20241121
  3. FINTEPLA [Suspect]
     Active Substance: FENFLURAMINE
  4. FINTEPLA [Suspect]
     Active Substance: FENFLURAMINE
     Dates: end: 20241201

REACTIONS (2)
  - Atonic seizures [Recovering/Resolving]
  - Fatigue [Not Recovered/Not Resolved]
